FAERS Safety Report 10510670 (Version 1)
Quarter: 2014Q4

REPORT INFORMATION
  Report Type: Report from Study
  Country: US (occurrence: US)
  Receive Date: 20141010
  Receipt Date: 20141010
  Transmission Date: 20150528
  Serious: Yes (Death, Hospitalization)
  Sender: FDA-Public Use
  Company Number: US-SA-2014SA138398

PATIENT
  Age: 62 Year
  Sex: Male
  Weight: 72 kg

DRUGS (9)
  1. METFORMIN [Concomitant]
     Active Substance: METFORMIN HYDROCHLORIDE
  2. ONDANSETRON [Concomitant]
     Active Substance: ONDANSETRON
     Indication: NAUSEA
     Dosage: AS NEEDED
  3. OTHER AGENTS FOR LOCAL ORAL TREATMENT [Concomitant]
     Indication: MUCOSAL INFLAMMATION
     Dosage: AS NEEDED
  4. FLUOROURACIL. [Suspect]
     Active Substance: FLUOROURACIL
     Indication: TONGUE NEOPLASM MALIGNANT STAGE UNSPECIFIED
     Route: 042
     Dates: start: 20140911, end: 20140915
  5. ASPIRIN. [Concomitant]
     Active Substance: ASPIRIN
  6. IMODIUM [Concomitant]
     Active Substance: LOPERAMIDE HYDROCHLORIDE
     Indication: DIARRHOEA
     Dosage: DOSE: 1 MG/5ML; AS NEEDED
  7. CIPROFLOXACIN. [Concomitant]
     Active Substance: CIPROFLOXACIN
     Dosage: FOR 10 DAYS
     Dates: start: 20140915
  8. JEVTANA [Suspect]
     Active Substance: CABAZITAXEL
     Indication: TONGUE NEOPLASM MALIGNANT STAGE UNSPECIFIED
     Route: 042
     Dates: start: 20140911, end: 20140911
  9. CISPLATIN. [Suspect]
     Active Substance: CISPLATIN
     Indication: TONGUE NEOPLASM MALIGNANT STAGE UNSPECIFIED
     Route: 042
     Dates: start: 20140911, end: 20140911

REACTIONS (4)
  - Pneumonia [Unknown]
  - Cardiac arrest [Fatal]
  - Sepsis [Unknown]
  - Renal impairment [Unknown]

NARRATIVE: CASE EVENT DATE: 20140922
